FAERS Safety Report 7796614-1 (Version None)
Quarter: 2011Q4

REPORT INFORMATION
  Report Type: 
  Country: None (occurrence: None)
  Receive Date: 20111005
  Receipt Date: 20111003
  Transmission Date: 20120403
  Serious: Yes (Disabling, Other)
  Sender: FDA-Public Use
  Company Number: US-PFIZER INC-2011143774

PATIENT
  Sex: Female

DRUGS (7)
  1. FIORINAL [Concomitant]
     Dosage: UNK
     Dates: start: 19960101, end: 20110101
  2. ADDERALL 5 [Concomitant]
     Dosage: UNK
     Dates: start: 20010101, end: 20110101
  3. CELEXA [Concomitant]
     Dosage: UNK
     Dates: start: 20010101, end: 20110101
  4. CHANTIX [Suspect]
     Indication: SMOKING CESSATION THERAPY
     Dosage: UNK
     Dates: start: 20070901, end: 20100101
  5. LEXAPRO [Concomitant]
     Dosage: UNK
     Dates: start: 19980101, end: 20100101
  6. IBUPROFEN [Concomitant]
     Dosage: UNK
     Dates: start: 20060101
  7. LISINOPRIL [Concomitant]
     Dosage: UNK
     Dates: start: 19980101, end: 20110101

REACTIONS (8)
  - MOOD SWINGS [None]
  - ANXIETY [None]
  - ABNORMAL BEHAVIOUR [None]
  - INTENTIONAL OVERDOSE [None]
  - MENTAL DISORDER [None]
  - AGGRESSION [None]
  - SUICIDE ATTEMPT [None]
  - DEPRESSION [None]
